FAERS Safety Report 24086262 (Version 1)
Quarter: 2024Q3

REPORT INFORMATION
  Report Type: Spontaneous
  Country: US (occurrence: US)
  Receive Date: 20240712
  Receipt Date: 20240712
  Transmission Date: 20241016
  Serious: Yes (Disabling)
  Sender: BAUSCH AND LOMB
  Company Number: US-BAUSCH-BL-2024-010451

PATIENT
  Age: 66 Year
  Sex: Male

DRUGS (1)
  1. XIFAXAN [Suspect]
     Active Substance: RIFAXIMIN
     Indication: Liver disorder
     Dosage: 1 TABLET IN THE MORNING AND 1 TABLET AT BEDTIME
     Route: 065

REACTIONS (4)
  - Disability [Unknown]
  - Back disorder [Unknown]
  - Sunburn [Unknown]
  - COVID-19 [Unknown]
